FAERS Safety Report 25413809 (Version 1)
Quarter: 2025Q2

REPORT INFORMATION
  Report Type: Spontaneous
  Country: KW (occurrence: KW)
  Receive Date: 20250609
  Receipt Date: 20250609
  Transmission Date: 20250717
  Serious: Yes (Other)
  Sender: ELI LILLY AND COMPANY
  Company Number: KW-ELI_LILLY_AND_COMPANY-KW202506000769

PATIENT
  Age: 55 Year
  Sex: Female

DRUGS (1)
  1. ABEMACICLIB [Suspect]
     Active Substance: ABEMACICLIB
     Indication: Breast cancer
     Dosage: 150 MG, BID
     Route: 065

REACTIONS (2)
  - Glomerular filtration rate decreased [Unknown]
  - Blood creatinine increased [Unknown]
